FAERS Safety Report 5013606-6 (Version None)
Quarter: 2006Q2

REPORT INFORMATION
  Report Type: 
  Country: None (occurrence: None)
  Receive Date: 20060530
  Receipt Date: 20060523
  Transmission Date: 20061013
  Serious: Yes (Other)
  Sender: FDA-Public Use
  Company Number: CA-GLAXOSMITHKLINE-A0606983A

PATIENT
  Age: 59 Year
  Sex: Male

DRUGS (9)
  1. AVANDIA [Suspect]
     Indication: DIABETES MELLITUS NON-INSULIN-DEPENDENT
     Route: 048
     Dates: end: 20051201
  2. GLYBURIDE [Concomitant]
     Dosage: 10MG PER DAY
  3. ZOCOR [Concomitant]
     Dosage: 80MG PER DAY
  4. PLAVIX [Concomitant]
     Dosage: 75MG PER DAY
  5. NORVASC [Concomitant]
     Dosage: 5MG PER DAY
  6. METOPROLOL [Concomitant]
     Dosage: 25MG PER DAY
  7. SYNTHROID [Concomitant]
  8. LIPIDIL [Concomitant]
     Dosage: 160MG PER DAY
  9. UNSPECIFIED MEDICATION [Concomitant]
     Dosage: 5MG PER DAY

REACTIONS (1)
  - HIGH DENSITY LIPOPROTEIN DECREASED [None]
